FAERS Safety Report 10642885 (Version 1)
Quarter: 2014Q4

REPORT INFORMATION
  Report Type: Spontaneous
  Country: US (occurrence: None)
  Receive Date: 20141209
  Receipt Date: 20141209
  Transmission Date: 20150529
  Serious: No
  Sender: FDA-Public Use
  Company Number: None

PATIENT
  Age: 22 Year
  Sex: Female
  Weight: 70.31 kg

DRUGS (1)
  1. MIRENA [Suspect]
     Active Substance: LEVONORGESTREL
     Indication: CONTRACEPTION
     Dosage: INTRAUTERINE
     Route: 015
     Dates: start: 20140807, end: 20141129

REACTIONS (4)
  - Muscle spasms [None]
  - Stress [None]
  - Medical device complication [None]
  - Alopecia [None]
